FAERS Safety Report 9053433 (Version 1)
Quarter: 2013Q1

REPORT INFORMATION
  Report Type: Spontaneous
  Country: DE (occurrence: DE)
  Receive Date: 20130208
  Receipt Date: 20130208
  Transmission Date: 20140127
  Serious: Yes (Death, Hospitalization, Other)
  Sender: FDA-Public Use
  Company Number: DE-JNJFOC-20130202633

PATIENT
  Age: 68 None
  Sex: Female

DRUGS (6)
  1. XARELTO [Suspect]
     Indication: ATRIAL FIBRILLATION
     Route: 048
     Dates: start: 20120422, end: 20121220
  2. XARELTO [Suspect]
     Indication: THROMBOSIS PROPHYLAXIS
     Route: 048
     Dates: start: 20120422, end: 20121220
  3. NEBIVOLOL [Concomitant]
     Indication: TACHYARRHYTHMIA
     Route: 065
     Dates: end: 20121220
  4. NEBIVOLOL [Concomitant]
     Indication: HYPERTENSION
     Route: 065
     Dates: end: 20121220
  5. SIMVASTATIN [Concomitant]
     Indication: HYPERCHOLESTEROLAEMIA
     Route: 065
     Dates: end: 20121220
  6. DIGITOXIN [Concomitant]
     Indication: ATRIAL FIBRILLATION
     Route: 065
     Dates: end: 20121220

REACTIONS (2)
  - Haemorrhage intracranial [Fatal]
  - Coma [Unknown]
